FAERS Safety Report 8880370 (Version 1)
Quarter: 2012Q4

REPORT INFORMATION
  Report Type: 
  Country: JP (occurrence: JP)
  Receive Date: 20121101
  Receipt Date: 20121101
  Transmission Date: 20130627
  Serious: Yes (Death, Hospitalization)
  Sender: FDA-Public Use
  Company Number: PHHY2012JP097815

PATIENT
  Age: 59 Year
  Sex: Female

DRUGS (2)
  1. CICLOSPORIN [Suspect]
     Indication: POLYARTERITIS NODOSA
     Dosage: 200 mg, per day
  2. PREDNISOLONE [Concomitant]
     Indication: POLYARTERITIS NODOSA
     Dosage: 40 mg, per day

REACTIONS (9)
  - Calciphylaxis [Fatal]
  - Eschar [Fatal]
  - Infected skin ulcer [Fatal]
  - Pain [Fatal]
  - Livedo reticularis [Fatal]
  - Polyarteritis nodosa [Fatal]
  - Wound necrosis [Fatal]
  - Pseudomonas infection [Unknown]
  - Polyarteritis nodosa [Unknown]
